FAERS Safety Report 5627127-0 (Version None)
Quarter: 2008Q1

REPORT INFORMATION
  Report Type: 
  Country: None (occurrence: None)
  Receive Date: 20080212
  Receipt Date: 20080212
  Transmission Date: 20080703
  Serious: Yes (Other)
  Sender: FDA-Public Use
  Company Number: None

PATIENT
  Age: 24 Year
  Sex: Female
  Weight: 79.3795 kg

DRUGS (1)
  1. DEPAKOTE ER [Suspect]
     Indication: MIGRAINE PROPHYLAXIS
     Dosage: 500MG 1X A DAY - BEDTIME PO
     Route: 048
     Dates: start: 20071224, end: 20071226

REACTIONS (9)
  - ABNORMAL BEHAVIOUR [None]
  - CRYING [None]
  - DEPRESSED MOOD [None]
  - DEPRESSION [None]
  - DEPRESSION SUICIDAL [None]
  - FEAR [None]
  - FEELING OF DESPAIR [None]
  - SELF ESTEEM DECREASED [None]
  - THINKING ABNORMAL [None]
